FAERS Safety Report 9466829 (Version 1)
Quarter: 2013Q3

REPORT INFORMATION
  Report Type: Not Available
  Country: FR (occurrence: FR)
  Receive Date: 20130820
  Receipt Date: 20130820
  Transmission Date: 20140515
  Serious: Yes (Hospitalization)
  Sender: FDA-Public Use
  Company Number: FR-NAPPMUNDI-GBR-2013-0015282

PATIENT
  Age: 73 Year
  Sex: Male

DRUGS (13)
  1. OXYCONTIN LP 40 MG, COMPRIME PELLICULE A LIBERATION PROLONGEE [Suspect]
     Indication: PAIN
     Dosage: 2 DF, DAILY
     Route: 048
  2. OXYCONTIN LP 40 MG, COMPRIME PELLICULE A LIBERATION PROLONGEE [Suspect]
     Indication: CANCER PAIN
  3. OXYNORM 10 MG, GELULE [Suspect]
     Indication: PAIN
     Dosage: 1 DF, Q6H
     Route: 048
  4. OXYNORM 10 MG, GELULE [Suspect]
     Indication: CANCER PAIN
  5. KARDEGIC [Concomitant]
     Dosage: 75 MG, UNK
     Route: 048
  6. ATACAND [Concomitant]
     Dosage: 16 MG, UNK
  7. LASILIX                            /00032601/ [Concomitant]
     Dosage: 40 MG, UNK
  8. SOLUPRED                           /00016201/ [Concomitant]
  9. EUPANTOL [Concomitant]
     Dosage: 40 MG, UNK
  10. GAVISCON                           /00237601/ [Concomitant]
  11. ZOLPIDEM [Concomitant]
  12. DEBRIDAT                           /00465201/ [Concomitant]
     Dosage: 200 MG, UNK
  13. DUPHALAC                           /00163401/ [Concomitant]

REACTIONS (3)
  - Malaise [Recovered/Resolved]
  - Urinary retention [Recovered/Resolved]
  - Faecaloma [Recovered/Resolved]
